FAERS Safety Report 5162614-3 (Version None)
Quarter: 2006Q4

REPORT INFORMATION
  Report Type: 
  Country: None (occurrence: None)
  Receive Date: 20061201
  Receipt Date: 20061123
  Transmission Date: 20070319
  Serious: Yes (Other)
  Sender: FDA-Public Use
  Company Number: CH-BRISTOL-MYERS SQUIBB COMPANY-13589619

PATIENT

DRUGS (2)
  1. REYATAZ [Suspect]
  2. ABACAVIR [Suspect]

REACTIONS (1)
  - HYPERSENSITIVITY [None]
